FAERS Safety Report 10957616 (Version 4)
Quarter: 2016Q4

REPORT INFORMATION
  Report Type: Spontaneous
  Country: US (occurrence: US)
  Receive Date: 20150326
  Receipt Date: 20161228
  Transmission Date: 20170206
  Serious: No
  Sender: FDA-Public Use
  Company Number: US-PFIZER INC-2015101396

PATIENT
  Age: 61 Year
  Sex: Female
  Weight: 65 kg

DRUGS (10)
  1. ATORVASTATIN CALCIUM. [Concomitant]
     Active Substance: ATORVASTATIN CALCIUM
     Dosage: UNK
  2. FISH OIL [Concomitant]
     Active Substance: FISH OIL
     Dosage: UNK
     Dates: start: 2010
  3. LISINOPRIL. [Concomitant]
     Active Substance: LISINOPRIL
     Dosage: UNK
  4. SUTENT [Suspect]
     Active Substance: SUNITINIB MALATE
     Indication: RENAL CANCER
     Dosage: 37.5 MG, UNK
     Dates: start: 20110301
  5. SUTENT [Suspect]
     Active Substance: SUNITINIB MALATE
     Indication: PSORIASIS
     Dosage: 12.5 MG, CYCLIC (6 WEEKS ON AND 2 WEEKS OFF)
  6. SUTENT [Suspect]
     Active Substance: SUNITINIB MALATE
     Dosage: 12.5 MG, DAILY
     Route: 048
  7. ATORVASTATIN [Concomitant]
     Active Substance: ATORVASTATIN
     Dosage: UNK
     Dates: start: 2000
  8. ESTRADIOL. [Concomitant]
     Active Substance: ESTRADIOL
     Dosage: UNK
     Dates: start: 2000
  9. CENTRUM [Concomitant]
     Active Substance: VITAMINS
     Dosage: UNK
  10. DIMENHYDRINATE. [Concomitant]
     Active Substance: DIMENHYDRINATE
     Dosage: UNK

REACTIONS (7)
  - Diarrhoea [Unknown]
  - Dysgeusia [Unknown]
  - Product use issue [Unknown]
  - Oral discomfort [Recovering/Resolving]
  - Sinusitis [Recovering/Resolving]
  - Dehydration [Unknown]
  - Burning sensation [Recovering/Resolving]
